FAERS Safety Report 18874866 (Version 2)
Quarter: 2021Q1

REPORT INFORMATION
  Report Type: Spontaneous
  Country: JP (occurrence: JP)
  Receive Date: 20210210
  Receipt Date: 20210320
  Transmission Date: 20210420
  Serious: Yes (Other)
  Sender: FDA-Public Use
  Company Number: JP-TAKEDA-2021TUS007768

PATIENT
  Age: 12 Year
  Sex: Male

DRUGS (1)
  1. 503 (GUANFACINE HYDROCHLORIDE) [Suspect]
     Active Substance: GUANFACINE HYDROCHLORIDE
     Indication: ATTENTION DEFICIT HYPERACTIVITY DISORDER
     Dosage: 1 MILLIGRAM
     Route: 048
     Dates: start: 202005, end: 20210113

REACTIONS (1)
  - Electrocardiogram QT prolonged [Recovered/Resolved]
